FAERS Safety Report 8624390-9 (Version None)
Quarter: 2012Q3

REPORT INFORMATION
  Report Type: 
  Country: None (occurrence: None)
  Receive Date: 20120827
  Receipt Date: 20120821
  Transmission Date: 20120928
  Serious: Yes (Other)
  Sender: FDA-Public Use
  Company Number: US-PFIZER INC-2012205583

PATIENT
  Age: 74 Year
  Sex: Female
  Weight: 86.168 kg

DRUGS (6)
  1. ATENOLOL [Concomitant]
     Indication: HYPERTENSION
     Dosage: UNK
  2. TRILIPIX [Concomitant]
     Indication: BLOOD TRIGLYCERIDES ABNORMAL
     Dosage: UNK
  3. PREMARIN [Suspect]
     Indication: VULVOVAGINAL DRYNESS
     Dosage: UNK, 1X/DAY AT NIGHT
     Route: 067
     Dates: start: 20120223, end: 20120801
  4. SYNTHROID [Concomitant]
     Dosage: UNK
  5. ASPIRIN [Concomitant]
     Dosage: UNK
  6. TEKTURNA [Concomitant]
     Indication: CARDIAC DISORDER
     Dosage: UNK

REACTIONS (3)
  - FEELING ABNORMAL [None]
  - MOVEMENT DISORDER [None]
  - SURGERY [None]
